FAERS Safety Report 5518108-6 (Version None)
Quarter: 2007Q4

REPORT INFORMATION
  Report Type: 
  Country: None (occurrence: None)
  Receive Date: 20071113
  Receipt Date: 20071029
  Transmission Date: 20080405
  Serious: Yes (Other)
  Sender: FDA-Public Use
  Company Number: 100#03#2007-04508

PATIENT
  Age: 61 Year
  Sex: Female

DRUGS (4)
  1. DOXYCYCLINE HCL [Suspect]
     Indication: PNEUMONIA PRIMARY ATYPICAL
     Dosage: 2 X 100 MG ORAL
     Route: 048
     Dates: start: 20070825, end: 20070828
  2. CONTROLOC (PANTOPRAZOLE) (TABLETS) (PANTOPRAZOL) [Concomitant]
  3. LUPOCET (PARACETAMOL) (PARACETAMOL) [Concomitant]
  4. VOLTAREN (DICLOFENAC POTASSIUM) (DICLOFENAC) [Concomitant]

REACTIONS (1)
  - HEPATITIS TOXIC [None]
